FAERS Safety Report 9239400 (Version 1)
Quarter: 2013Q2

REPORT INFORMATION
  Report Type: Spontaneous
  Country: DE (occurrence: GB)
  Receive Date: 20130418
  Receipt Date: 20130418
  Transmission Date: 20140414
  Serious: Yes (Hospitalization)
  Sender: FDA-Public Use
  Company Number: DE-ACTELION-A-US2013-82202

PATIENT
  Age: 40 Year
  Sex: Male

DRUGS (2)
  1. VENTAVIS BAYER SCHERING [Suspect]
     Indication: PRODUCT USED FOR UNKNOWN INDICATION
     Route: 055
  2. HUMIRA [Suspect]

REACTIONS (4)
  - Peripheral artery thrombosis [Recovering/Resolving]
  - Peripheral ischaemia [Recovering/Resolving]
  - Subclavian artery thrombosis [Recovering/Resolving]
  - Drug ineffective [Unknown]
